FAERS Safety Report 24343016 (Version 1)
Quarter: 2024Q3

REPORT INFORMATION
  Report Type: Spontaneous
  Country: CN (occurrence: CN)
  Receive Date: 20240920
  Receipt Date: 20240920
  Transmission Date: 20241017
  Serious: Yes (Other)
  Sender: NOVITIUM PHARMA
  Company Number: CN-NOVITIUMPHARMA-2024CNNVP01900

PATIENT
  Age: 52 Year
  Sex: Female

DRUGS (8)
  1. DEXAMETHASONE [Suspect]
     Active Substance: DEXAMETHASONE
     Indication: Langerhans^ cell histiocytosis
     Dates: start: 20230717
  2. PREDNISONE [Suspect]
     Active Substance: PREDNISONE
     Indication: Langerhans^ cell histiocytosis
     Dosage: WITH 4 CYCLES OF TREATMENT
  3. VINDESINE [Concomitant]
     Active Substance: VINDESINE
     Dates: start: 20230717
  4. VINDESINE [Concomitant]
     Active Substance: VINDESINE
  5. CYCLOPHOSPHAMIDE [Concomitant]
     Active Substance: CYCLOPHOSPHAMIDE
     Dates: start: 20230717
  6. ETOPOSIDE [Concomitant]
     Active Substance: ETOPOSIDE
     Dates: start: 20230717
  7. DESMOPRESSIN [Concomitant]
     Active Substance: DESMOPRESSIN
     Indication: Diabetes insipidus
  8. LEVOTHYROXINE SODIUM [Concomitant]
     Active Substance: LEVOTHYROXINE SODIUM
     Indication: Hypothyroidism

REACTIONS (2)
  - Localised infection [Recovered/Resolved]
  - Localised infection [None]
